FAERS Safety Report 23309248 (Version 1)
Quarter: 2023Q4

REPORT INFORMATION
  Report Type: Spontaneous
  Country: US (occurrence: None)
  Receive Date: 20231216
  Receipt Date: 20231216
  Transmission Date: 20240110
  Serious: Yes (unspecified)
  Sender: FDA-Public Use
  Company Number: None

PATIENT
  Age: 40 Year
  Sex: Female
  Weight: 86.18 kg

DRUGS (2)
  1. MIRENA [Suspect]
     Active Substance: LEVONORGESTREL
     Dates: start: 20221221, end: 20231204
  2. VITAMINS [Concomitant]
     Active Substance: VITAMINS

REACTIONS (3)
  - Complication of device removal [None]
  - Vaginal haemorrhage [None]
  - Therapy cessation [None]

NARRATIVE: CASE EVENT DATE: 20231211
